FAERS Safety Report 7576656-1 (Version None)
Quarter: 2011Q2

REPORT INFORMATION
  Report Type: 
  Country: None (occurrence: None)
  Receive Date: 20110628
  Receipt Date: 20110531
  Transmission Date: 20111010
  Serious: Yes (Other)
  Sender: FDA-Public Use
  Company Number: US-BAYER-201039836NA

PATIENT
  Age: 21 Year
  Sex: Female
  Weight: 84.49 kg

DRUGS (3)
  1. YAZ [Suspect]
     Indication: PREMENSTRUAL SYNDROME
     Dosage: UNK
     Dates: start: 20070101, end: 20070301
  2. DROSPIRENONE AND ETHINYL ESTRADIOL [Suspect]
     Indication: PREMENSTRUAL SYNDROME
     Route: 048
     Dates: start: 20090101, end: 20090401
  3. YAZ [Suspect]
     Dosage: UNK
     Dates: start: 20080101, end: 20080201

REACTIONS (6)
  - BACK PAIN [None]
  - CHEST PAIN [None]
  - GALLBLADDER DISORDER [None]
  - HYDROCHOLECYSTIS [None]
  - NAUSEA [None]
  - CHOLECYSTITIS CHRONIC [None]
